FAERS Safety Report 9251163 (Version 1)
Quarter: 2013Q1

REPORT INFORMATION
  Report Type: Spontaneous
  Country: US (occurrence: None)
  Receive Date: 20130305
  Receipt Date: 20130305
  Transmission Date: 20140127
  Serious: Yes (Hospitalization, Other)
  Sender: FDA-Public Use
  Company Number: 163-21880-12100034

PATIENT
  Age: 73 Year
  Sex: Female
  Weight: 70.31 kg

DRUGS (7)
  1. REVLIMID [Suspect]
     Indication: MYELODYSPLASTIC SYNDROME
     Dosage: 10MG, 28 IN 28 D, PO
     Route: 048
     Dates: start: 200709, end: 200709
  2. LOW DOSE ASA (ACETYLSALICYLIC ACID) [Concomitant]
  3. ATENOLOL (ATENOLOL) [Concomitant]
  4. GABAPENTIN (GABAPENTIN) [Concomitant]
  5. NAMEDA (MEMANTINE HYDROCHLORIDE) [Concomitant]
  6. VITAMIN B12 (CYANOCOBALAMIN) [Concomitant]
  7. VITAMIN E (TOCOPHEROL) [Concomitant]

REACTIONS (5)
  - Bone marrow failure [None]
  - Pneumonia [None]
  - Pulmonary thrombosis [None]
  - Red blood cell count decreased [None]
  - White blood cell count decreased [None]
